FAERS Safety Report 14196237 (Version 3)
Quarter: 2018Q1

REPORT INFORMATION
  Report Type: Spontaneous
  Country: GB (occurrence: GB)
  Receive Date: 20171116
  Receipt Date: 20180305
  Transmission Date: 20180508
  Serious: Yes (Other)
  Sender: FDA-Public Use
  Company Number: GB-JNJFOC-20171105320

PATIENT
  Age: 45 Year
  Sex: Female
  Weight: 73 kg

DRUGS (1)
  1. PARACETAMOL/CODEINE [Suspect]
     Active Substance: ACETAMINOPHEN\CODEINE PHOSPHATE
     Indication: PELVIC PAIN
     Dosage: 2 DOSES (UNIT UNSPECIFIED)
     Route: 048
     Dates: start: 20171008, end: 20171009

REACTIONS (5)
  - Abdominal pain upper [Unknown]
  - Pancreatitis [Not Recovered/Not Resolved]
  - Amylase increased [Unknown]
  - Musculoskeletal chest pain [Unknown]
  - Back pain [Unknown]

NARRATIVE: CASE EVENT DATE: 20171001
